FAERS Safety Report 17602819 (Version 2)
Quarter: 2020Q2

REPORT INFORMATION
  Report Type: Spontaneous
  Country: US (occurrence: US)
  Receive Date: 20200331
  Receipt Date: 20200414
  Transmission Date: 20200713
  Serious: No
  Sender: FDA-Public Use
  Company Number: US-CELGENEUS-USA-20200307988

PATIENT
  Sex: Female

DRUGS (2)
  1. REVLIMID [Suspect]
     Active Substance: LENALIDOMIDE
     Indication: PLASMA CELL MYELOMA
     Dosage: 25 MILLIGRAM
     Route: 048
     Dates: start: 20180629
  2. REVLIMID [Suspect]
     Active Substance: LENALIDOMIDE
     Indication: LARGE INTESTINE BENIGN NEOPLASM
     Dosage: 10 MILLIGRAM
     Route: 048
     Dates: start: 201910

REACTIONS (3)
  - Full blood count decreased [Recovered/Resolved]
  - Limb discomfort [Recovered/Resolved]
  - Adverse drug reaction [Unknown]
